FAERS Safety Report 10215231 (Version 1)
Quarter: 2014Q2

REPORT INFORMATION
  Report Type: Report from Study
  Country: BR (occurrence: BR)
  Receive Date: 20140603
  Receipt Date: 20140603
  Transmission Date: 20141212
  Serious: Yes (Other)
  Sender: FDA-Public Use
  Company Number: PHHY2014BR066779

PATIENT
  Sex: Female
  Weight: 63 kg

DRUGS (5)
  1. ACLASTA [Suspect]
     Indication: OSTEOPOROSIS
     Dosage: 1 APPLICATION A YEAR
     Route: 042
     Dates: start: 2013
  2. CALCIUM D3 /01483701/ [Suspect]
     Indication: OSTEOPOROSIS
     Dosage: 1 DF, UNK
     Dates: start: 2013
  3. DIGOXIN [Concomitant]
     Indication: CARDIAC DISORDER
     Dosage: 0.5 DF, HALF A TABLET A DAY
     Dates: start: 2006
  4. LOSARTAN [Concomitant]
     Indication: BLOOD PRESSURE ABNORMAL
     Dosage: 1 DF, A DAY
     Dates: start: 2013
  5. HYDROCHLOROTHIAZIDE [Concomitant]
     Indication: DIURETIC THERAPY
     Dosage: HALF A TABLET A DAY
     Dates: start: 2013

REACTIONS (4)
  - Fall [Recovering/Resolving]
  - Hip fracture [Recovering/Resolving]
  - Contusion [Recovering/Resolving]
  - Pain [Unknown]
